FAERS Safety Report 18888674 (Version 3)
Quarter: 2021Q2

REPORT INFORMATION
  Report Type: Spontaneous
  Country: CA (occurrence: CA)
  Receive Date: 20210212
  Receipt Date: 20210420
  Transmission Date: 20210717
  Serious: Yes (Disabling, Other)
  Sender: FDA-Public Use
  Company Number: CA-PFIZER INC-2021130700

PATIENT
  Age: 26 Year
  Sex: Male
  Weight: 72.7 kg

DRUGS (1)
  1. METHOTREXATE SODIUM. [Suspect]
     Active Substance: METHOTREXATE SODIUM
     Indication: CROHN^S DISEASE
     Dosage: 1 DF (UNKNOWN DOSE, FREQUENCY)

REACTIONS (3)
  - Crohn^s disease [Unknown]
  - Suspected COVID-19 [Unknown]
  - Off label use [Unknown]
